FAERS Safety Report 4356522-5 (Version None)
Quarter: 2004Q2

REPORT INFORMATION
  Report Type: 
  Country: None (occurrence: None)
  Receive Date: 20040510
  Receipt Date: 20040510
  Transmission Date: 20050107
  Serious: Yes (Other)
  Sender: FDA-Public Use
  Company Number: None

PATIENT
  Age: 74 Year
  Sex: Male
  Weight: 656.8085 kg

DRUGS (1)
  1. LOTREL [Suspect]
     Indication: HYPERTENSION
     Dosage: 1 DAY ORAL
     Route: 048

REACTIONS (5)
  - AMNESIA [None]
  - DISORIENTATION [None]
  - HEADACHE [None]
  - PALPITATIONS [None]
  - READING DISORDER [None]
